FAERS Safety Report 9653141 (Version 2)
Quarter: 2014Q1

REPORT INFORMATION
  Report Type: Spontaneous
  Country: US (occurrence: US)
  Receive Date: 20131029
  Receipt Date: 20140107
  Transmission Date: 20141002
  Serious: No
  Sender: FDA-Public Use
  Company Number: US-BIOGENIDEC-2013BI078693

PATIENT
  Age: 59 Year
  Sex: Female

DRUGS (2)
  1. TECFIDERA [Suspect]
     Indication: MULTIPLE SCLEROSIS
  2. AVONEX [Concomitant]
     Indication: MULTIPLE SCLEROSIS
     Route: 030

REACTIONS (16)
  - Connective tissue disorder [Unknown]
  - Fatigue [Not Recovered/Not Resolved]
  - Asthenia [Recovered/Resolved]
  - Bladder pain [Unknown]
  - Urinary tract infection [Unknown]
  - Loss of control of legs [Unknown]
  - Poor peripheral circulation [Unknown]
  - Cognitive disorder [Unknown]
  - Faecal incontinence [Unknown]
  - Secondary progressive multiple sclerosis [Unknown]
  - Malaise [Recovered/Resolved]
  - Mobility decreased [Unknown]
  - Gastric disorder [Not Recovered/Not Resolved]
  - Aphagia [Recovered/Resolved]
  - Abdominal discomfort [Recovered/Resolved]
  - Diarrhoea [Unknown]
